FAERS Safety Report 4308548-5 (Version None)
Quarter: 2004Q1

REPORT INFORMATION
  Report Type: 
  Country: None (occurrence: None)
  Receive Date: 20040227
  Receipt Date: 20040218
  Transmission Date: 20041129
  Serious: Yes (Death)
  Sender: FDA-Public Use
  Company Number: US-JNJFOC-20040200105

PATIENT
  Age: 56 Year
  Sex: Female
  Weight: 57.38 kg

DRUGS (4)
  1. REMICADE [Suspect]
     Indication: CROHN'S DISEASE
     Dosage: 10 MG/KG, INTRAVENOUS
     Route: 042
  2. PREDNISONE [Concomitant]
  3. SOLU-MEDROL [Concomitant]
  4. METHOTREXATE [Concomitant]

REACTIONS (3)
  - NOCARDIOSIS [None]
  - PNEUMONITIS [None]
  - RESPIRATORY FAILURE [None]
